FAERS Safety Report 6542468-0 (Version None)
Quarter: 2010Q1

REPORT INFORMATION
  Report Type: 
  Country: None (occurrence: None)
  Receive Date: 20100119
  Receipt Date: 20100104
  Transmission Date: 20100710
  Serious: Yes (Hospitalization)
  Sender: FDA-Public Use
  Company Number: GB-PFIZER INC-2009313414

PATIENT

DRUGS (10)
  1. BLINDED *PLACEBO [Suspect]
     Indication: RHEUMATOID ARTHRITIS
     Dosage: UNK
     Dates: start: 20090928, end: 20091120
  2. ATORVASTATIN CALCIUM [Suspect]
     Indication: RHEUMATOID ARTHRITIS
     Dosage: UNK
     Dates: start: 20090928, end: 20091120
  3. BLINDED *PLACEBO [Suspect]
     Indication: CARDIOVASCULAR EVENT PROPHYLAXIS
  4. ATORVASTATIN CALCIUM [Suspect]
     Indication: CARDIOVASCULAR EVENT PROPHYLAXIS
  5. METHOTREXATE [Concomitant]
     Dosage: 25 MG, WEEKLY
  6. HYDROXYCHLOROQUINE [Concomitant]
     Dosage: 200 MG, 2X/DAY
  7. DICLOFENAC [Concomitant]
     Dosage: UNK
  8. FOLIC ACID [Concomitant]
     Dosage: 5 MG, WEEKLY
  9. SOLPADOL [Concomitant]
     Dosage: UNK
  10. LANSOPRAZOLE [Concomitant]
     Dosage: 30 MG, 1X/DAY

REACTIONS (1)
  - HYPERCALCAEMIA [None]
